FAERS Safety Report 16854640 (Version 1)
Quarter: 2019Q3

REPORT INFORMATION
  Report Type: Spontaneous
  Country: US (occurrence: US)
  Receive Date: 20190926
  Receipt Date: 20190926
  Transmission Date: 20191005
  Serious: No
  Sender: FDA-Public Use
  Company Number: US-BION-007849

PATIENT
  Sex: Male
  Weight: 63.5 kg

DRUGS (1)
  1. IMODIUM A-D [Suspect]
     Active Substance: LOPERAMIDE HYDROCHLORIDE
     Indication: DIARRHOEA
     Route: 048
     Dates: start: 20190224, end: 20190228

REACTIONS (2)
  - Product blister packaging issue [Unknown]
  - Drug ineffective [Not Recovered/Not Resolved]
